FAERS Safety Report 6470481-0 (Version None)
Quarter: 2009Q4

REPORT INFORMATION
  Report Type: 
  Country: None (occurrence: None)
  Receive Date: 20091202
  Receipt Date: 20091202
  Transmission Date: 20100525
  Serious: Yes (Hospitalization, Other)
  Sender: FDA-Public Use
  Company Number: None

PATIENT
  Sex: Female
  Weight: 26.7622 kg

DRUGS (2)
  1. THIN STRIPS COUGH AND RUNNY NOSE 1 STRIP TRIAMINIC [Suspect]
     Indication: COUGH
     Dosage: 1 STRIP 1 TIME PO
     Route: 048
     Dates: start: 20091110, end: 20091110
  2. THIN STRIPS COUGH AND RUNNY NOSE 1 STRIP TRIAMINIC [Suspect]
     Indication: RHINORRHOEA
     Dosage: 1 STRIP 1 TIME PO
     Route: 048
     Dates: start: 20091110, end: 20091110

REACTIONS (9)
  - HALLUCINATION, AUDITORY [None]
  - MIDDLE INSOMNIA [None]
  - MYDRIASIS [None]
  - PRODUCT QUALITY ISSUE [None]
  - PRODUCT TAMPERING [None]
  - SCREAMING [None]
  - SLEEP TERROR [None]
  - TREMOR [None]
  - UPPER RESPIRATORY TRACT INFECTION [None]
